FAERS Safety Report 12162626 (Version 1)
Quarter: 2016Q1

REPORT INFORMATION
  Report Type: Other
  Country: IT (occurrence: IT)
  Receive Date: 20160309
  Receipt Date: 20160309
  Transmission Date: 20160526
  Serious: Yes (Other)
  Sender: FDA-Public Use
  Company Number: IT-MYLANLABS-2016M1009000

PATIENT

DRUGS (3)
  1. OLANZAPINE. [Suspect]
     Active Substance: OLANZAPINE
     Indication: PRODUCT USED FOR UNKNOWN INDICATION
     Dosage: 40 MG, TOTAL
     Route: 048
     Dates: start: 20160201, end: 20160201
  2. RIVOTRIL [Suspect]
     Active Substance: CLONAZEPAM
     Indication: PRODUCT USED FOR UNKNOWN INDICATION
     Dosage: 50 GTT, TOTAL
     Route: 048
     Dates: start: 20160201, end: 20160201
  3. HALDOL [Suspect]
     Active Substance: HALOPERIDOL
     Indication: PRODUCT USED FOR UNKNOWN INDICATION
     Dosage: 60 GTT, TOTAL
     Route: 048
     Dates: start: 20160201, end: 20160201

REACTIONS (3)
  - Bradyphrenia [Unknown]
  - Intentional overdose [Unknown]
  - Self injurious behaviour [Unknown]

NARRATIVE: CASE EVENT DATE: 20160201
